FAERS Safety Report 15564456 (Version 2)
Quarter: 2018Q4

REPORT INFORMATION
  Report Type: Report from Study
  Country: None (occurrence: IL)
  Receive Date: 20181030
  Receipt Date: 20181102
  Transmission Date: 20190205
  Serious: Yes (Other)
  Sender: FDA-Public Use
  Company Number: IL-ABBVIE-18S-082-2527370-00

PATIENT
  Age: 63 Year
  Sex: Female

DRUGS (1)
  1. DUODOPA [Suspect]
     Active Substance: CARBIDOPA\LEVODOPA
     Indication: PRODUCT USED FOR UNKNOWN INDICATION
     Dosage: MD 9ML (INCREASED TO 11ML),CD 2.6ML/HOUR (INCREASED TO 3.5ML/HOUR),ED 1ML
     Route: 050
     Dates: start: 20181011

REACTIONS (4)
  - Constipation [Unknown]
  - Infrequent bowel movements [Unknown]
  - Post procedural haemorrhage [Recovered/Resolved]
  - On and off phenomenon [Unknown]

NARRATIVE: CASE EVENT DATE: 20181019
